FAERS Safety Report 4860811-5 (Version None)
Quarter: 2005Q4

REPORT INFORMATION
  Report Type: 
  Country: None (occurrence: None)
  Receive Date: 20051220
  Receipt Date: 20050831
  Transmission Date: 20060501
  Serious: No
  Sender: FDA-Public Use
  Company Number: US-BRISTOL-MYERS SQUIBB COMPANY-13159728

PATIENT

DRUGS (1)
  1. BARACLUDE [Suspect]

REACTIONS (1)
  - ABDOMINAL DISTENSION [None]
